FAERS Safety Report 4977978-0 (Version None)
Quarter: 2006Q2

REPORT INFORMATION
  Report Type: 
  Country: None (occurrence: None)
  Receive Date: 20060414
  Receipt Date: 20060331
  Transmission Date: 20061013
  Serious: Yes (Death)
  Sender: FDA-Public Use
  Company Number: S06-FRA-01340-01

PATIENT
  Age: 60 Year
  Sex: Female

DRUGS (18)
  1. SEROPLEX     (ESCITALOPRAM) [Suspect]
     Dosage: 10 MG QD PO
     Route: 048
     Dates: start: 20060110, end: 20060214
  2. PREVISCAN (FLUINDIONE) [Suspect]
     Dosage: 20 MG QD PO
     Route: 048
     Dates: start: 20051219
  3. PREVISCAN (FLUINDIONE) [Suspect]
     Dosage: 20 MG BID PO
     Route: 048
     Dates: end: 20060109
  4. PREVISCAN (FLUINDIONE) [Suspect]
     Dosage: 20 MG DAILY PO
     Route: 048
     Dates: start: 20060110, end: 20060130
  5. PREVISCAN (FLUINDIONE) [Suspect]
     Dosage: 20 MG QOD PO
     Route: 048
     Dates: start: 20060131, end: 20060214
  6. PREVISCAN (FLUINDIONE) [Suspect]
     Dosage: 30 MG QOD PO
     Route: 048
     Dates: start: 20060131, end: 20060214
  7. ANAFRANIL [Suspect]
     Dosage: 75 MG QD PO
     Route: 048
     Dates: start: 20060209, end: 20060214
  8. CIPROFLOXACIN HCL [Concomitant]
  9. PARKINANE                  (TRIHEXYPHENIDYL HYDROCHLORIDE) [Concomitant]
  10. TERCIAN    (CYAMEMAZINE) [Concomitant]
  11. HALOPERIDOL [Concomitant]
  12. IMOVANE (ZOPICLONE) [Concomitant]
  13. TRANXENE [Concomitant]
  14. EFFEXOR [Concomitant]
  15. VALPROATE SODIUM [Concomitant]
  16. RISPERDAL [Concomitant]
  17. ZOLPIDEM TARTRATE [Concomitant]
  18. LEXOMIL (BROMAZEPAM) [Concomitant]

REACTIONS (5)
  - CEREBRAL HAEMORRHAGE [None]
  - DRUG INTERACTION [None]
  - INTERNATIONAL NORMALISED RATIO INCREASED [None]
  - SOMNOLENCE [None]
  - VOMITING [None]
